FAERS Safety Report 8639619 (Version 4)
Quarter: 2013Q2

REPORT INFORMATION
  Report Type: Spontaneous
  Country: US (occurrence: None)
  Receive Date: 20120614
  Receipt Date: 20130612
  Transmission Date: 20140414
  Serious: Yes (Hospitalization, Other)
  Sender: FDA-Public Use
  Company Number: JPI-P-021740

PATIENT
  Age: 38 Year
  Sex: Female

DRUGS (4)
  1. XYREM [Suspect]
     Indication: NARCOLEPSY
     Dosage: (3 GM,2 IN 1 D)
     Route: 048
     Dates: start: 20060425
  2. INSECT REPELLENT [Suspect]
     Indication: PROPHYLAXIS
     Dosage: STOPPED
  3. ACETAMINOPHEN W/OXYCODONE [Concomitant]
  4. MORPHINE EXTENDED RELEASE [Concomitant]

REACTIONS (28)
  - STRESS [None]
  - HYPERSENSITIVITY [None]
  - SKIN IRRITATION [None]
  - SKIN DISCOLOURATION [None]
  - SKIN BURNING SENSATION [None]
  - ERYTHEMA [None]
  - RASH [None]
  - OEDEMA PERIPHERAL [None]
  - FORMICATION [None]
  - HALLUCINATION [None]
  - PITUITARY TUMOUR [None]
  - SPINAL COLUMN STENOSIS [None]
  - PAIN IN EXTREMITY [None]
  - ARTHRITIS [None]
  - HYPOKALAEMIA [None]
  - WEIGHT DECREASED [None]
  - CONFUSIONAL STATE [None]
  - HALLUCINATION, VISUAL [None]
  - NEUROPATHY PERIPHERAL [None]
  - SPINAL CORD COMPRESSION [None]
  - HEADACHE [None]
  - INTERVERTEBRAL DISC PROTRUSION [None]
  - ROAD TRAFFIC ACCIDENT [None]
  - Condition aggravated [None]
  - Feeling abnormal [None]
  - Somnolence [None]
  - Somnambulism [None]
  - Head injury [None]
